FAERS Safety Report 12012059 (Version 1)
Quarter: 2016Q1

REPORT INFORMATION
  Report Type: Report from Study
  Country: US (occurrence: US)
  Receive Date: 20160205
  Receipt Date: 20160205
  Transmission Date: 20160526
  Serious: Yes (Hospitalization)
  Sender: FDA-Public Use
  Company Number: US-AEGERION PHARMACEUTICALS-AEGR002380

PATIENT
  Age: 62 Year
  Sex: Male
  Weight: 71.66 kg

DRUGS (1)
  1. JUXTAPID [Suspect]
     Active Substance: LOMITAPIDE MESYLATE
     Indication: TYPE IIA HYPERLIPIDAEMIA
     Dosage: 5 MG, QD
     Route: 048
     Dates: start: 20151211, end: 20160114

REACTIONS (8)
  - Vomiting [Recovering/Resolving]
  - Arrhythmia [Not Recovered/Not Resolved]
  - Surgery [Unknown]
  - Nausea [Recovering/Resolving]
  - Vision blurred [Recovering/Resolving]
  - Therapy cessation [Unknown]
  - Decreased appetite [Recovering/Resolving]
  - Dizziness [Recovering/Resolving]

NARRATIVE: CASE EVENT DATE: 201601
